FAERS Safety Report 4719228-6 (Version None)
Quarter: 2005Q3

REPORT INFORMATION
  Report Type: 
  Country: None (occurrence: None)
  Receive Date: 20050718
  Receipt Date: 20050718
  Transmission Date: 20060218
  Serious: Yes (Death)
  Sender: FDA-Public Use
  Company Number: None

PATIENT
  Age: 45 Year
  Sex: Male
  Weight: 86.1834 kg

DRUGS (1)
  1. FENTANYL [Suspect]
     Indication: JOINT INJURY
     Dosage: ONE PATCH EVERY THREE
     Dates: start: 20050415, end: 20050424

REACTIONS (1)
  - DEATH [None]
